FAERS Safety Report 4362125-9 (Version None)
Quarter: 2004Q2

REPORT INFORMATION
  Report Type: 
  Country: None (occurrence: None)
  Receive Date: 20040517
  Receipt Date: 20040430
  Transmission Date: 20050107
  Serious: Yes (Hospitalization)
  Sender: FDA-Public Use
  Company Number: 197139

PATIENT
  Age: 56 Year
  Sex: Female
  Weight: 72.5755 kg

DRUGS (8)
  1. AVONEX      BIOGEN [Suspect]
     Indication: MULTIPLE SCLEROSIS
     Dosage: 30 MCG QW IM
     Route: 030
     Dates: start: 19980101, end: 20030101
  2. AVONEX     BIOGEN [Suspect]
     Indication: MULTIPLE SCLEROSIS
     Dosage: 30 MCG QW IM
     Route: 030
     Dates: start: 20030101
  3. DIOVAN [Concomitant]
  4. ZETIA [Concomitant]
  5. BACLOFEN [Concomitant]
  6. MULTIVITAMIN [Concomitant]
  7. CALCIUM [Concomitant]
  8. ZINC [Concomitant]

REACTIONS (2)
  - STRESS SYMPTOMS [None]
  - TRANSIENT ISCHAEMIC ATTACK [None]
